FAERS Safety Report 4752430-6 (Version None)
Quarter: 2005Q3

REPORT INFORMATION
  Report Type: 
  Country: None (occurrence: None)
  Receive Date: 20050823
  Receipt Date: 20050810
  Transmission Date: 20060218
  Serious: Yes (Hospitalization)
  Sender: FDA-Public Use
  Company Number: WAES 0508USA02362

PATIENT
  Age: 50 Year
  Sex: Female

DRUGS (3)
  1. COZAAR [Suspect]
     Indication: HYPERTENSION
     Dosage: 50 MG DAILY PO
     Route: 048
     Dates: start: 20040126, end: 20020205
  2. DIOVAN [Concomitant]
  3. FLUITRAN [Concomitant]

REACTIONS (5)
  - BREAST CANCER FEMALE [None]
  - DIZZINESS [None]
  - DRUG EFFECT DECREASED [None]
  - GASTROENTERITIS VIRAL [None]
  - TREATMENT NONCOMPLIANCE [None]
